FAERS Safety Report 25429512 (Version 1)
Quarter: 2025Q2

REPORT INFORMATION
  Report Type: Report from Study
  Country: CA (occurrence: CA)
  Receive Date: 20250612
  Receipt Date: 20250612
  Transmission Date: 20250716
  Serious: Yes (Other)
  Sender: ELI LILLY AND COMPANY
  Company Number: CA-ELI_LILLY_AND_COMPANY-CA202506006280

PATIENT
  Age: 56 Year
  Sex: Female

DRUGS (1)
  1. EBGLYSS [Suspect]
     Active Substance: LEBRIKIZUMAB-LBKZ
     Indication: Dermatitis atopic
     Dosage: 250 MG, EVERY 4 WEEKS
     Route: 058
     Dates: start: 20250313, end: 20250519

REACTIONS (12)
  - Anorectal infection bacterial [Recovering/Resolving]
  - Vulvovaginal mycotic infection [Recovering/Resolving]
  - Sexually transmitted disease [Recovering/Resolving]
  - Vulvovaginal pruritus [Recovering/Resolving]
  - Anal pruritus [Recovering/Resolving]
  - Genital paraesthesia [Recovering/Resolving]
  - Anal paraesthesia [Recovering/Resolving]
  - Herpes zoster [Recovering/Resolving]
  - Eye irritation [Unknown]
  - Malaise [Unknown]
  - Influenza [Recovering/Resolving]
  - Nasopharyngitis [Recovering/Resolving]

NARRATIVE: CASE EVENT DATE: 20250301
